FAERS Safety Report 5937995-0 (Version None)
Quarter: 2008Q4

REPORT INFORMATION
  Report Type: 
  Country: None (occurrence: None)
  Receive Date: 20081031
  Receipt Date: 20081021
  Transmission Date: 20090506
  Serious: Yes (Death, Other)
  Sender: FDA-Public Use
  Company Number: US-PFIZER INC-2008081241

PATIENT
  Sex: Female
  Weight: 54.545 kg

DRUGS (1)
  1. LIPITOR [Suspect]
     Dates: start: 20050101

REACTIONS (3)
  - BREAST CANCER METASTATIC [None]
  - ISCHAEMIC CARDIOMYOPATHY [None]
  - MULTI-ORGAN FAILURE [None]
